FAERS Safety Report 7503589-9 (Version None)
Quarter: 2011Q2

REPORT INFORMATION
  Report Type: 
  Country: None (occurrence: None)
  Receive Date: 20110524
  Receipt Date: 20110524
  Transmission Date: 20111010
  Serious: Yes (Other)
  Sender: FDA-Public Use
  Company Number: None

PATIENT
  Age: 12 Year
  Sex: Female
  Weight: 31.7518 kg

DRUGS (4)
  1. CHILDREN'S CLARITIN [Suspect]
     Indication: RHINORRHOEA
     Dosage: 2 TBSP ONCE DAILY PO
     Route: 048
     Dates: start: 20110502, end: 20110509
  2. CHILDREN'S CLARITIN [Suspect]
     Indication: OCULAR HYPERAEMIA
     Dosage: 2 TBSP ONCE DAILY PO
     Route: 048
     Dates: start: 20110502, end: 20110509
  3. CHILDREN'S CLARITIN [Suspect]
     Indication: SNEEZING
     Dosage: 2 TBSP ONCE DAILY PO
     Route: 048
     Dates: start: 20110502, end: 20110509
  4. CHILDREN'S CLARITIN [Suspect]
     Indication: SEASONAL ALLERGY
     Dosage: 2 TBSP ONCE DAILY PO
     Route: 048
     Dates: start: 20110502, end: 20110509

REACTIONS (1)
  - MUSCLE TWITCHING [None]
